FAERS Safety Report 6401126-3 (Version None)
Quarter: 2009Q4

REPORT INFORMATION
  Report Type: 
  Country: None (occurrence: None)
  Receive Date: 20091015
  Receipt Date: 20091005
  Transmission Date: 20100525
  Serious: Yes (Other)
  Sender: FDA-Public Use
  Company Number: US-JNJFOC-20090901838

PATIENT
  Sex: Male

DRUGS (5)
  1. REMICADE [Suspect]
     Indication: PSORIASIS
     Dosage: 3 INFUSIONS
     Route: 042
     Dates: start: 20090312, end: 20090423
  2. LASIX [Concomitant]
  3. ASPIRIN [Concomitant]
  4. DIGOXIN [Concomitant]
  5. TOPROL-XL [Concomitant]

REACTIONS (1)
  - TUBERCULOSIS [None]
